FAERS Safety Report 5466941-1 (Version None)
Quarter: 2007Q3

REPORT INFORMATION
  Report Type: 
  Country: None (occurrence: None)
  Receive Date: 20070921
  Receipt Date: 20070921
  Transmission Date: 20080115
  Serious: No
  Sender: FDA-Public Use
  Company Number: None

PATIENT

DRUGS (1)
  1. DURAGESIC-12 [Suspect]
     Indication: PAIN
     Dosage: 12.5MCG PER HOUR Q72H TOP
     Route: 061

REACTIONS (2)
  - CIRCUMSTANCE OR INFORMATION CAPABLE OF LEADING TO MEDICATION ERROR [None]
  - PHARMACEUTICAL PRODUCT COMPLAINT [None]
